FAERS Safety Report 8324642-6 (Version None)
Quarter: 2012Q2

REPORT INFORMATION
  Report Type: 
  Country: None (occurrence: None)
  Receive Date: 20120501
  Receipt Date: 20120418
  Transmission Date: 20120825
  Serious: Yes (Hospitalization, Other)
  Sender: FDA-Public Use
  Company Number: FR-VERTEX PHARMACEUTICALS INC.-000000000000000562

PATIENT
  Sex: Male
  Weight: 85 kg

DRUGS (7)
  1. PROPRANOLOL [Concomitant]
     Indication: PORTAL HYPERTENSION
     Route: 065
     Dates: start: 20100101
  2. NEORECORMON [Concomitant]
     Indication: ANAEMIA
     Route: 065
     Dates: start: 20110620
  3. COPEGUS [Concomitant]
     Indication: HEPATITIS C
     Route: 065
     Dates: start: 20110520
  4. TELAPREVIR [Suspect]
     Indication: HEPATITIS C
     Dosage: DOSAGE FORM: TABLET, 12 WEEKS OF COURSE TREATMENT COMPLETED
     Route: 048
     Dates: start: 20110520
  5. PEGASYS [Concomitant]
     Indication: HEPATITIS C
     Route: 065
     Dates: start: 20110520
  6. COPEGUS [Concomitant]
     Route: 065
  7. PEGASYS [Concomitant]
     Dates: start: 20110902

REACTIONS (2)
  - PROSTATITIS ESCHERICHIA COLI [None]
  - FEBRILE NEUTROPENIA [None]
